FAERS Safety Report 6713375-5 (Version None)
Quarter: 2010Q2

REPORT INFORMATION
  Report Type: 
  Country: None (occurrence: None)
  Receive Date: 20100506
  Receipt Date: 20100422
  Transmission Date: 20101027
  Serious: Yes (Hospitalization)
  Sender: FDA-Public Use
  Company Number: DE-ROCHE-700690

PATIENT
  Sex: Male
  Weight: 62 kg

DRUGS (8)
  1. BEVACIZUMAB [Suspect]
     Route: 042
     Dates: start: 20090723, end: 20091217
  2. IRINOTECAN HYDROCHLORIDE [Suspect]
     Route: 042
     Dates: start: 20090723, end: 20091217
  3. FOLIC ACID [Suspect]
     Route: 042
     Dates: start: 20090723, end: 20091217
  4. FLUOROURACIL [Suspect]
     Route: 042
     Dates: start: 20090723, end: 20091217
  5. KEVATRIL [Concomitant]
     Dosage: D 1, 2, 8, 9
     Route: 042
  6. VERGENTAN [Concomitant]
     Dosage: D 3-5, 10-12
     Route: 048
  7. ATROPIN [Concomitant]
     Dosage: D 1, 8, 15, 29, 36 AND 43
     Route: 058
  8. DEXAMETHASONE TAB [Concomitant]
     Dosage: D1,2
     Route: 042

REACTIONS (2)
  - DEHYDRATION [None]
  - ENTERITIS [None]
